FAERS Safety Report 8020298-0 (Version None)
Quarter: 2012Q1

REPORT INFORMATION
  Report Type: 
  Country: None (occurrence: None)
  Receive Date: 20120103
  Receipt Date: 20111222
  Transmission Date: 20120608
  Serious: Yes (Death)
  Sender: FDA-Public Use
  Company Number: US-CELGENEUS-163-21880-11091387

PATIENT
  Sex: Male

DRUGS (6)
  1. LOMOTIL [Concomitant]
     Dosage: 2.5 MILLIGRAM
     Route: 048
     Dates: start: 20110607
  2. LEXAPRO [Concomitant]
     Indication: DEPRESSION
     Dosage: 10 MILLIGRAM
     Route: 048
     Dates: start: 20110503
  3. CALCIUM ACETATE [Concomitant]
     Dosage: 500 MILLIGRAM
     Route: 048
     Dates: start: 20110325
  4. VITAMIN D [Concomitant]
     Dosage: 2000 UNITS
     Route: 065
     Dates: start: 20110325
  5. REVLIMID [Suspect]
     Indication: MULTIPLE MYELOMA
     Dosage: 10 MILLIGRAM
     Route: 048
     Dates: start: 20101001
  6. REVLIMID [Suspect]
     Indication: AUTOLOGOUS BONE MARROW TRANSPLANTATION THERAPY

REACTIONS (1)
  - COMPLETED SUICIDE [None]
